FAERS Safety Report 17907126 (Version 12)
Quarter: 2021Q4

REPORT INFORMATION
  Report Type: Spontaneous
  Country: PL (occurrence: PL)
  Receive Date: 20200617
  Receipt Date: 20211027
  Transmission Date: 20220303
  Serious: Yes (Hospitalization, Other)
  Sender: FDA-Public Use
  Company Number: PL-GEN-2020-1153

PATIENT
  Age: 42 Year
  Sex: Female

DRUGS (46)
  1. QUETIAPINE [Interacting]
     Active Substance: QUETIAPINE
     Indication: Product used for unknown indication
     Dosage: 25 MILLIGRAM, QD BEFORE SLEEP (25 MG AT NIGHT)
     Route: 048
  2. QUETIAPINE [Interacting]
     Active Substance: QUETIAPINE
     Dosage: 25 MILLIGRAM, QD BEFORE SLEEP (25 MG AT NIGHT)
     Route: 065
  3. DULOXETINE [Interacting]
     Active Substance: DULOXETINE
     Indication: Hypertension
     Dosage: 90 MILLIGRAM, QD
     Route: 048
  4. DULOXETINE [Interacting]
     Active Substance: DULOXETINE
     Dosage: 90 MILLIGRAM, QD
     Route: 065
  5. DULOXETINE [Interacting]
     Active Substance: DULOXETINE
     Dosage: UNK
     Route: 048
  6. AMLODIPINE [Interacting]
     Active Substance: AMLODIPINE BESYLATE
     Indication: Hypertension
     Dosage: 10 MILLIGRAM
     Route: 065
  7. AMLODIPINE [Interacting]
     Active Substance: AMLODIPINE BESYLATE
     Dosage: UNK
     Route: 048
  8. OLANZAPINE [Interacting]
     Active Substance: OLANZAPINE
     Indication: Antiemetic supportive care
     Dosage: 5 MILLIGRAM PER DAY
     Route: 065
  9. OLANZAPINE [Interacting]
     Active Substance: OLANZAPINE
     Indication: Vomiting
     Dosage: 10 MILLIGRAM, QD  (5 MILLIGRAM)
     Route: 065
  10. OLANZAPINE [Interacting]
     Active Substance: OLANZAPINE
     Indication: Nausea
     Dosage: 10 MILLIGRAM
     Route: 048
  11. OLANZAPINE [Interacting]
     Active Substance: OLANZAPINE
     Indication: Prophylaxis of nausea and vomiting
     Dosage: 5 MG
     Route: 065
  12. OLANZAPINE [Interacting]
     Active Substance: OLANZAPINE
     Dosage: UNK(INITIALLY AT A DOSE OF 5 MG)
  13. OLANZAPINE [Interacting]
     Active Substance: OLANZAPINE
     Dosage: UNK(INCREASED TO 10 MG/DAY)
     Route: 048
  14. OLANZAPINE [Interacting]
     Active Substance: OLANZAPINE
     Dosage: 5 MILLIGRAM PER DAY
  15. OLANZAPINE [Interacting]
     Active Substance: OLANZAPINE
     Dosage: 10 MILLIGRAM
  16. OLANZAPINE [Interacting]
     Active Substance: OLANZAPINE
     Dosage: UNK
     Route: 048
  17. PREGABALIN [Suspect]
     Active Substance: PREGABALIN
     Indication: Hypertension
     Dosage: 300 MILLIGRAM, QD
     Route: 048
  18. PREGABALIN [Suspect]
     Active Substance: PREGABALIN
     Dosage: UNK
     Route: 048
  19. PREGABALIN [Suspect]
     Active Substance: PREGABALIN
     Dosage: 300 MILLIGRAM, QD
     Route: 065
  20. AMLODIPINE BESYLATE\PERINDOPRIL [Interacting]
     Active Substance: AMLODIPINE BESYLATE\PERINDOPRIL
     Indication: Hypertension
     Dosage: 1 DOSAGE FORM(1 DF  10 MG PERINDOPRIL  10 MG AMLODIPINE)
     Route: 065
  21. AMLODIPINE BESYLATE\PERINDOPRIL [Interacting]
     Active Substance: AMLODIPINE BESYLATE\PERINDOPRIL
     Dosage: 1 DOSAGE FORM, QD
     Route: 048
  22. CIPROFLOXACIN [Interacting]
     Active Substance: CIPROFLOXACIN
     Indication: Dysuria
     Dosage: 500 MILLIGRAM, BID(2 X 500 MG P.O.)
     Route: 048
  23. CIPROFLOXACIN [Interacting]
     Active Substance: CIPROFLOXACIN
     Indication: Palliative care
     Dosage: 1000 MILLIGRAM, QD (500 MG, BID)
     Route: 048
  24. CIPROFLOXACIN [Interacting]
     Active Substance: CIPROFLOXACIN
     Dosage: UNK
     Route: 048
  25. CIPROFLOXACIN [Interacting]
     Active Substance: CIPROFLOXACIN
     Dosage: 500 MILLIGRAM, QD
     Route: 048
  26. CIPROFLOXACIN [Suspect]
     Active Substance: CIPROFLOXACIN
     Indication: Dysuria
     Dosage: 500 MILLIGRAM, TOTAL
     Route: 051
  27. DIPHENHYDRAMINE [Suspect]
     Active Substance: DIPHENHYDRAMINE
     Indication: Product used for unknown indication
     Dosage: UNK
  28. MIDAZOLAM [Interacting]
     Active Substance: MIDAZOLAM
     Indication: Product used for unknown indication
     Dosage: 5 MILLIGRAM
     Route: 042
  29. CIPROFLOXACIN HYDROCHLORIDE [Suspect]
     Active Substance: CIPROFLOXACIN HYDROCHLORIDE
     Indication: Dysuria
     Dosage: 1000 MILLIGRAM, QD
  30. DEXAMETHASONE [Concomitant]
     Active Substance: DEXAMETHASONE
     Indication: Vomiting
     Dosage: UNK
     Route: 065
  31. DEXAMETHASONE [Concomitant]
     Active Substance: DEXAMETHASONE
     Indication: Nausea
     Dosage: UNK
     Route: 065
  32. DEXAMETHASONE [Concomitant]
     Active Substance: DEXAMETHASONE
     Indication: Antiemetic supportive care
  33. METOCLOPRAMIDE [Concomitant]
     Active Substance: METOCLOPRAMIDE
     Indication: Nausea
     Dosage: UNK
     Route: 065
  34. METOCLOPRAMIDE [Concomitant]
     Active Substance: METOCLOPRAMIDE
     Indication: Vomiting
     Dosage: UNK
     Route: 065
  35. METOCLOPRAMIDE [Concomitant]
     Active Substance: METOCLOPRAMIDE
     Indication: Antiemetic supportive care
  36. PERINDOPRIL [Concomitant]
     Active Substance: PERINDOPRIL
     Indication: Hypertension
     Dosage: A COMBINATION OF PERINDOPRIL 10 MG AND AMLODIPINE 10 MG
     Route: 065
  37. PERINDOPRIL [Concomitant]
     Active Substance: PERINDOPRIL
     Dosage: 10 MILLIGRAM
     Route: 048
  38. PERINDOPRIL [Concomitant]
     Active Substance: PERINDOPRIL
     Dosage: UNK
     Route: 048
  39. MORPHINE [Interacting]
     Active Substance: MORPHINE
     Indication: Breast cancer
     Dosage: 80 MG, 2X PER DAY (80 MILLIGRAM, BID )
     Route: 048
  40. MORPHINE [Interacting]
     Active Substance: MORPHINE
     Dosage: 80 MILLIGRAM, QD (8 MILLIGRAM 0.5 DAY)
     Route: 048
  41. MORPHINE [Interacting]
     Active Substance: MORPHINE
     Dosage: 80 MILLIGRAM, BID (2 X 80 MG)
     Route: 065
  42. MORPHINE [Interacting]
     Active Substance: MORPHINE
     Dosage: UNK
     Route: 048
  43. DIMENHYDRINATE [Concomitant]
     Active Substance: DIMENHYDRINATE
     Indication: Vomiting
     Dosage: UNK
     Route: 065
  44. DIMENHYDRINATE [Concomitant]
     Active Substance: DIMENHYDRINATE
     Indication: Nausea
     Dosage: UNK
     Route: 065
  45. DIMENHYDRINATE [Concomitant]
     Active Substance: DIMENHYDRINATE
     Indication: Antiemetic supportive care
  46. CIPROFLOXACIN [Concomitant]
     Active Substance: CIPROFLOXACIN
     Dosage: UNK

REACTIONS (22)
  - Toxicity to various agents [Unknown]
  - Drug level increased [Unknown]
  - Tinnitus [Unknown]
  - Dysuria [Unknown]
  - Anxiety [Unknown]
  - Thirst [Unknown]
  - Paraesthesia [Unknown]
  - Urinary retention [Unknown]
  - Nausea [Unknown]
  - Restlessness [Unknown]
  - Vomiting [Unknown]
  - Drug interaction [Unknown]
  - Polydipsia [Unknown]
  - Off label use [Unknown]
  - Drug ineffective [Unknown]
  - Medication error [Unknown]
  - Drug ineffective for unapproved indication [Unknown]
  - Contraindicated product administered [Unknown]
  - Therapeutic product effect incomplete [Unknown]
  - Product prescribing error [Unknown]
  - Drug effective for unapproved indication [Unknown]
  - Product use in unapproved indication [Unknown]

NARRATIVE: CASE EVENT DATE: 20200101
